FAERS Safety Report 4483230-2 (Version None)
Quarter: 2004Q3

REPORT INFORMATION
  Report Type: 
  Country: None (occurrence: None)
  Receive Date: 20040921
  Receipt Date: 20040624
  Transmission Date: 20050211
  Serious: Yes (Hospitalization)
  Sender: FDA-Public Use
  Company Number: 163-20785-04060668(0)

PATIENT
  Age: 72 Year
  Sex: Male

DRUGS (2)
  1. THALOMID [Suspect]
  2. ZOMETA [Concomitant]

REACTIONS (2)
  - BLOOD CALCIUM INCREASED [None]
  - DYSPNOEA [None]
